FAERS Safety Report 9345660 (Version 1)
Quarter: 2013Q2

REPORT INFORMATION
  Report Type: Spontaneous
  Country: US (occurrence: US)
  Receive Date: 20130613
  Receipt Date: 20130613
  Transmission Date: 20140414
  Serious: No
  Sender: FDA-Public Use
  Company Number: US-FOUGERA-2013FO000017

PATIENT
  Age: 32 Year
  Sex: Female

DRUGS (1)
  1. HYDROCORTISONE [Suspect]
     Indication: RASH
     Route: 061
     Dates: start: 20130123, end: 20130124

REACTIONS (1)
  - Rash [Not Recovered/Not Resolved]
